FAERS Safety Report 6657726-9 (Version None)
Quarter: 2010Q1

REPORT INFORMATION
  Report Type: 
  Country: None (occurrence: None)
  Receive Date: 20100319
  Receipt Date: 20090106
  Transmission Date: 20100710
  Serious: Yes (Hospitalization, Other)
  Sender: FDA-Public Use
  Company Number: 2009SP000450

PATIENT
  Age: 49 Year
  Sex: Male

DRUGS (2)
  1. RIBAVIRIN [Suspect]
     Indication: HEPATITIS C
     Dosage: 800 MG; PO
     Route: 048
     Dates: start: 20081001, end: 20090103
  2. PEGINTERFERON ALFA-2A [Suspect]
     Indication: HEPATITIS C
     Dates: start: 20081001

REACTIONS (5)
  - DRUG HYPERSENSITIVITY [None]
  - DRY SKIN [None]
  - PRURITUS [None]
  - RASH [None]
  - TACHYCARDIA [None]
